FAERS Safety Report 5856200-7 (Version None)
Quarter: 2008Q3

REPORT INFORMATION
  Report Type: 
  Country: None (occurrence: None)
  Receive Date: 20080825
  Receipt Date: 20080815
  Transmission Date: 20090109
  Serious: Yes (Other)
  Sender: FDA-Public Use
  Company Number: A0743998A

PATIENT
  Age: 84 Year
  Sex: Female

DRUGS (4)
  1. ADVAIR DISKUS 100/50 [Suspect]
     Indication: ASTHMA
     Route: 055
  2. ATENOLOL [Concomitant]
  3. ALBUTEROL [Concomitant]
  4. ACTONEL [Concomitant]

REACTIONS (5)
  - ARRHYTHMIA [None]
  - ASTHMA [None]
  - DYSPNOEA [None]
  - MIDDLE INSOMNIA [None]
  - PERFUME SENSITIVITY [None]
